FAERS Safety Report 4818137-1 (Version None)
Quarter: 2005Q3

REPORT INFORMATION
  Report Type: 
  Country: None (occurrence: None)
  Receive Date: 20050929
  Receipt Date: 20050829
  Transmission Date: 20060218
  Serious: No
  Sender: FDA-Public Use
  Company Number: 05P-163-0309592-00

PATIENT
  Age: 72 Year
  Sex: Female
  Weight: 62.5964 kg

DRUGS (8)
  1. HUMIRA [Suspect]
     Indication: RHEUMATOID ARTHRITIS
     Dosage: 40 MG, 1 IN 2 WK, SUBCUTANEOUS
     Route: 058
     Dates: start: 20050713, end: 20050727
  2. HYDROCHOLROQUINE PHOSPHATE [Concomitant]
  3. ALENDRONATE SODIUM [Concomitant]
  4. METHOTREXATE [Concomitant]
  5. FOLIC ACID [Concomitant]
  6. PREDNISONE [Concomitant]
  7. LOTREL [Concomitant]
  8. HYDROCHLOROTHIAZIDE [Concomitant]

REACTIONS (1)
  - HERPES ZOSTER [None]
